FAERS Safety Report 15583539 (Version 1)
Quarter: 2018Q4

REPORT INFORMATION
  Report Type: Spontaneous
  Country: US (occurrence: US)
  Receive Date: 20181105
  Receipt Date: 20181105
  Transmission Date: 20190205
  Serious: No
  Sender: FDA-Public Use
  Company Number: US-ACCORD-068931

PATIENT
  Age: 72 Year
  Sex: Female
  Weight: 65.32 kg

DRUGS (1)
  1. ESCITALOPRAM ACCORD [Suspect]
     Active Substance: ESCITALOPRAM OXALATE
     Indication: DEPRESSION
     Dosage: STRENGTH: 20 MG
     Route: 048

REACTIONS (8)
  - Nightmare [Unknown]
  - Condition aggravated [Unknown]
  - Decreased interest [Unknown]
  - Fatigue [Unknown]
  - Abnormal dreams [Not Recovered/Not Resolved]
  - Product physical issue [Unknown]
  - Drug ineffective [Unknown]
  - Quality of life decreased [Unknown]
